FAERS Safety Report 15925563 (Version 5)
Quarter: 2019Q1

REPORT INFORMATION
  Report Type: Spontaneous
  Country: US (occurrence: US)
  Receive Date: 20190206
  Receipt Date: 20190321
  Transmission Date: 20190417
  Serious: No
  Sender: FDA-Public Use
  Company Number: US-PFIZER INC-2019048160

PATIENT
  Sex: Female

DRUGS (2)
  1. SODIUM BICARBONATE. [Suspect]
     Active Substance: SODIUM BICARBONATE
     Indication: HYPOAESTHESIA
     Dosage: 8.4% INJECTION USP 50ML
  2. EPINEPHRINE/LIDOCAINE HYDROCHLORIDE [Suspect]
     Active Substance: EPINEPHRINE\LIDOCAINE HYDROCHLORIDE
     Indication: HYPOAESTHESIA
     Dosage: UNK

REACTIONS (10)
  - Flushing [Unknown]
  - Injection site pain [Unknown]
  - Dizziness [Unknown]
  - Drug ineffective [Unknown]
  - Injection site induration [Unknown]
  - Injection site erythema [Unknown]
  - Hyperventilation [Unknown]
  - Burning sensation [None]
  - Product contamination [None]
  - Needle issue [None]

NARRATIVE: CASE EVENT DATE: 20190129
